FAERS Safety Report 6635280-5 (Version None)
Quarter: 2010Q1

REPORT INFORMATION
  Report Type: 
  Country: None (occurrence: None)
  Receive Date: 20100315
  Receipt Date: 20100302
  Transmission Date: 20100710
  Serious: Yes (Death, Other)
  Sender: FDA-Public Use
  Company Number: US-TYCO HEALTHCARE/MALLINCKRODT-T201000706

PATIENT
  Age: 62 Year
  Sex: Female

DRUGS (2)
  1. MD-GASTROVIEW [Suspect]
     Indication: COMPUTERISED TOMOGRAM
     Route: 050
  2. MD-GASTROVIEW [Suspect]
     Dosage: UNK
     Route: 050

REACTIONS (2)
  - DEATH [None]
  - VOMITING [None]
